FAERS Safety Report 7256714-1 (Version None)
Quarter: 2011Q1

REPORT INFORMATION
  Report Type: 
  Country: None (occurrence: None)
  Receive Date: 20110129
  Receipt Date: 20100722
  Transmission Date: 20110831
  Serious: No
  Sender: FDA-Public Use
  Company Number: US-ABBOTT-10P-163-0659405-00

PATIENT
  Age: 64 Year
  Sex: Male

DRUGS (6)
  1. LISINOPRIL [Concomitant]
     Indication: HYPERTENSION
  2. PREDNISONE [Concomitant]
     Indication: RHEUMATOID ARTHRITIS
  3. HYDROCODONE [Concomitant]
     Indication: PAIN
     Dosage: EVERY 8-12 HOURS AS REQUIRED
  4. HUMIRA [Suspect]
     Indication: RHEUMATOID ARTHRITIS
     Dates: start: 20100610
  5. MULTI-VITAMIN [Concomitant]
     Indication: VITAMIN SUPPLEMENTATION
  6. ZOCOR [Concomitant]
     Indication: BLOOD CHOLESTEROL INCREASED

REACTIONS (1)
  - PAIN [None]
